FAERS Safety Report 16184656 (Version 2)
Quarter: 2019Q2

REPORT INFORMATION
  Report Type: Spontaneous
  Country: FR (occurrence: FR)
  Receive Date: 20190411
  Receipt Date: 20190502
  Transmission Date: 20190711
  Serious: Yes (Death)
  Sender: FDA-Public Use
  Company Number: FR-009507513-1904FRA003486

PATIENT
  Age: 82 Year
  Sex: Female

DRUGS (1)
  1. KEYTRUDA [Suspect]
     Active Substance: PEMBROLIZUMAB
     Indication: LUNG ADENOCARCINOMA
     Dosage: 3 COURSES BETWEEN NOVEMBER 2018 AND JANUARY 2019
     Route: 042
     Dates: start: 201811, end: 2019

REACTIONS (1)
  - Intervertebral discitis [Fatal]

NARRATIVE: CASE EVENT DATE: 201901
